FAERS Safety Report 4459538-3 (Version None)
Quarter: 2004Q3

REPORT INFORMATION
  Report Type: 
  Country: None (occurrence: None)
  Receive Date: 20040910
  Receipt Date: 20040609
  Transmission Date: 20050211
  Serious: No
  Sender: FDA-Public Use
  Company Number: 2004218821US

PATIENT
  Age: 83 Year
  Sex: Female

DRUGS (1)
  1. BEXTRA [Suspect]
     Indication: BACK PAIN
     Dosage: 10 MG, QD
     Dates: start: 20040101, end: 20040101

REACTIONS (1)
  - DISCOMFORT [None]
